FAERS Safety Report 5307844-2 (Version None)
Quarter: 2007Q1

REPORT INFORMATION
  Report Type: 
  Country: None (occurrence: None)
  Receive Date: 20070201
  Receipt Date: 20061206
  Transmission Date: 20070707
  Serious: No
  Sender: FDA-Public Use
  Company Number: 2006PV026422

PATIENT
  Age: 52 Year
  Sex: Female
  Weight: 85.2762 kg

DRUGS (12)
  1. BYETTA [Suspect]
     Indication: DIABETES MELLITUS NON-INSULIN-DEPENDENT
     Dosage: SEE IMAGE
     Route: 058
     Dates: start: 20060429, end: 20060601
  2. BYETTA [Suspect]
     Indication: DIABETES MELLITUS NON-INSULIN-DEPENDENT
     Dosage: SEE IMAGE
     Route: 058
     Dates: start: 20060601
  3. CORTISONE ACETATE [Suspect]
     Indication: INTERVERTEBRAL DISC PROTRUSION
  4. CORTISONE ACETATE [Suspect]
     Indication: ROTATOR CUFF SYNDROME
  5. CEFUROXIME [Suspect]
     Indication: BACTERIAL INFECTION
     Dosage: 500 MG; BID; PO
     Route: 048
     Dates: start: 20060701, end: 20060701
  6. ZITHROMAX [Suspect]
     Indication: BACTERIAL INFECTION
     Dosage: PO
     Route: 048
     Dates: start: 20061128, end: 20061203
  7. GLYBURIDE [Concomitant]
  8. METFORMIN HCL [Concomitant]
  9. ACTOS [Concomitant]
  10. SKELAXIN [Concomitant]
  11. LIDODERM [Concomitant]
  12. IBUPROFEN [Concomitant]

REACTIONS (15)
  - BLOOD GLUCOSE DECREASED [None]
  - BLOOD GLUCOSE INCREASED [None]
  - DYSPNOEA [None]
  - EAR INFECTION [None]
  - EAR PAIN [None]
  - EYE HAEMORRHAGE [None]
  - INTERVERTEBRAL DISC PROTRUSION [None]
  - MOBILITY DECREASED [None]
  - PHARYNGITIS BACTERIAL [None]
  - PHARYNGOLARYNGEAL PAIN [None]
  - ROTATOR CUFF SYNDROME [None]
  - SINUS HEADACHE [None]
  - SINUSITIS BACTERIAL [None]
  - TREMOR [None]
  - WEIGHT DECREASED [None]
